FAERS Safety Report 18091958 (Version 1)
Quarter: 2020Q3

REPORT INFORMATION
  Report Type: Spontaneous
  Country: US (occurrence: US)
  Receive Date: 20200730
  Receipt Date: 20200730
  Transmission Date: 20201103
  Serious: Yes (Hospitalization)
  Sender: FDA-Public Use
  Company Number: None

PATIENT
  Age: 83 Year
  Sex: Male
  Weight: 120 kg

DRUGS (1)
  1. AMIODARONE [Suspect]
     Active Substance: AMIODARONE
     Indication: ATRIAL FIBRILLATION
     Route: 048
     Dates: start: 20191030, end: 20191212

REACTIONS (5)
  - Atypical pneumonia [None]
  - Dyspnoea [None]
  - Vomiting [None]
  - Interstitial lung disease [None]
  - Nausea [None]

NARRATIVE: CASE EVENT DATE: 20191126
